FAERS Safety Report 11416531 (Version 3)
Quarter: 2016Q1

REPORT INFORMATION
  Report Type: Report from Study
  Country: US (occurrence: US)
  Receive Date: 20150825
  Receipt Date: 20160304
  Transmission Date: 20160525
  Serious: Yes (Other)
  Sender: FDA-Public Use
  Company Number: US-JNJFOC-20150811596

PATIENT
  Sex: Female
  Weight: 95.26 kg

DRUGS (10)
  1. REMICADE [Suspect]
     Active Substance: INFLIXIMAB
     Indication: CROHN^S DISEASE
     Dosage: INITIATED ON AN UNSPECIFIED DATE 5-6 YERS AGO
     Route: 042
  2. METHOTREXATE [Concomitant]
     Active Substance: METHOTREXATE
     Indication: RHEUMATOID ARTHRITIS
     Dosage: 2.5 MG
     Route: 065
  3. CYMBALTA [Concomitant]
     Active Substance: DULOXETINE HYDROCHLORIDE
     Indication: DEPRESSION
     Route: 065
  4. FOLIC ACID. [Concomitant]
     Active Substance: FOLIC ACID
     Route: 065
  5. FENOFIBRATE. [Concomitant]
     Active Substance: FENOFIBRATE
     Indication: BLOOD TRIGLYCERIDES
     Route: 065
  6. REMICADE [Suspect]
     Active Substance: INFLIXIMAB
     Indication: CROHN^S DISEASE
     Route: 042
  7. REMICADE [Suspect]
     Active Substance: INFLIXIMAB
     Indication: RHEUMATOID ARTHRITIS
     Route: 042
  8. XANAX [Concomitant]
     Active Substance: ALPRAZOLAM
     Dosage: AS NEEDED
     Route: 065
  9. BISOPROLOL/HYDROCHLOROTHIAZID [Concomitant]
     Indication: HYPERTENSION
     Dosage: 2.5 MG AND 6.25 MG
     Route: 065
  10. REMICADE [Suspect]
     Active Substance: INFLIXIMAB
     Indication: RHEUMATOID ARTHRITIS
     Dosage: INITIATED ON AN UNSPECIFIED DATE 5-6 YERS AGO
     Route: 042

REACTIONS (14)
  - Drug dose omission [Unknown]
  - Squamous cell carcinoma [Unknown]
  - Rheumatoid arthritis [Not Recovered/Not Resolved]
  - Jaw disorder [Unknown]
  - Hypoaesthesia [Recovering/Resolving]
  - Pruritus [Unknown]
  - Thrombophlebitis superficial [Unknown]
  - Victim of abuse [Unknown]
  - Laziness [Unknown]
  - Drug effect decreased [Unknown]
  - Bacterial infection [Unknown]
  - Acne [Unknown]
  - Diabetes mellitus [Not Recovered/Not Resolved]
  - Weight increased [Not Recovered/Not Resolved]

NARRATIVE: CASE EVENT DATE: 2015
